FAERS Safety Report 18077761 (Version 1)
Quarter: 2020Q3

REPORT INFORMATION
  Report Type: Spontaneous
  Country: AT (occurrence: AT)
  Receive Date: 20200727
  Receipt Date: 20200727
  Transmission Date: 20201103
  Serious: Yes (Death)
  Sender: FDA-Public Use
  Company Number: AT-PURDUE-USA-2020-0159501

PATIENT
  Age: 44 Year
  Sex: Male

DRUGS (2)
  1. SUBSTITOL [Suspect]
     Active Substance: MORPHINE SULFATE
     Indication: PRODUCT USED FOR UNKNOWN INDICATION
     Dosage: UNK
     Route: 065
  2. FENTANYL. [Suspect]
     Active Substance: FENTANYL
     Indication: PRODUCT USED FOR UNKNOWN INDICATION
     Dosage: UNK
     Route: 060

REACTIONS (3)
  - Intentional overdose [Fatal]
  - Drug diversion [Unknown]
  - Respiratory paralysis [Fatal]

NARRATIVE: CASE EVENT DATE: 20191123
